FAERS Safety Report 10551463 (Version 1)
Quarter: 2014Q4

REPORT INFORMATION
  Report Type: Spontaneous
  Country: NL (occurrence: None)
  Receive Date: 20141027
  Receipt Date: 20141027
  Transmission Date: 20150529
  Serious: Yes (Hospitalization)
  Sender: FDA-Public Use
  Company Number: 2590389

PATIENT
  Age: 29 Year
  Sex: Male

DRUGS (2)
  1. METRONIDAZOLE. [Suspect]
     Active Substance: METRONIDAZOLE
     Indication: APPENDIX DISORDER
     Route: 042
  2. CEFUROXIME SODIUM. [Suspect]
     Active Substance: CEFUROXIME SODIUM
     Indication: APPENDIX DISORDER
     Route: 042

REACTIONS (3)
  - Factor V inhibition [None]
  - Activated partial thromboplastin time prolonged [None]
  - Prothrombin time prolonged [None]
